FAERS Safety Report 9526780 (Version 1)
Quarter: 2013Q3

REPORT INFORMATION
  Report Type: Spontaneous
  Country: US (occurrence: US)
  Receive Date: 20130916
  Receipt Date: 20130916
  Transmission Date: 20140515
  Serious: Yes (Other)
  Sender: FDA-Public Use
  Company Number: US-GLAXOSMITHKLINE-A1041567A

PATIENT
  Age: 66 Year
  Sex: Male

DRUGS (1)
  1. VOTRIENT [Suspect]
     Indication: RENAL CANCER
     Dosage: 800MG UNKNOWN
     Route: 065
     Dates: start: 201003

REACTIONS (7)
  - Genital haemorrhage [Recovered/Resolved]
  - Anal haemorrhage [Recovered/Resolved]
  - Ear haemorrhage [Recovered/Resolved]
  - Dysphonia [Recovered/Resolved]
  - Hearing impaired [Recovered/Resolved]
  - Epistaxis [Recovered/Resolved]
  - Vomiting [Unknown]
